FAERS Safety Report 4778064-5 (Version None)
Quarter: 2005Q3

REPORT INFORMATION
  Report Type: 
  Country: None (occurrence: None)
  Receive Date: 20050922
  Receipt Date: 20050907
  Transmission Date: 20060218
  Serious: Yes (Death, Hospitalization, Other)
  Sender: FDA-Public Use
  Company Number: 200511864BWH

PATIENT

DRUGS (5)
  1. TRASYLOL [Suspect]
     Dosage: SEE IMAGE
     Route: 042
     Dates: start: 20050601
  2. TRASYLOL [Suspect]
     Dosage: SEE IMAGE
     Route: 042
     Dates: start: 20050601
  3. TRASYLOL [Suspect]
     Dosage: SEE IMAGE
     Route: 042
     Dates: start: 20050601
  4. ASPIRIN [Concomitant]
  5. CLOPIDOGREL [Concomitant]

REACTIONS (10)
  - ANAPHYLACTIC REACTION [None]
  - BLOOD CREATININE INCREASED [None]
  - DYSPNOEA [None]
  - HYPOTENSION [None]
  - HYPOXIA [None]
  - LUNG NEOPLASM [None]
  - POST PROCEDURAL COMPLICATION [None]
  - RESPIRATORY DISORDER [None]
  - SYSTEMIC INFLAMMATORY RESPONSE SYNDROME [None]
  - THROMBOCYTOPENIA [None]
